FAERS Safety Report 4487208-4 (Version None)
Quarter: 2004Q4

REPORT INFORMATION
  Report Type: 
  Country: None (occurrence: None)
  Receive Date: 20041022
  Receipt Date: 20041014
  Transmission Date: 20050328
  Serious: Yes (Life-Threatening)
  Sender: FDA-Public Use
  Company Number: 2004AP05279

PATIENT
  Age: 63 Year
  Sex: Male

DRUGS (3)
  1. ANAPEINE [Suspect]
     Indication: EPIDURAL ANAESTHESIA
     Dosage: 5 ML ED
     Route: 008
  2. DIPRIVAN [Concomitant]
  3. FENTANYL CITRATE [Concomitant]

REACTIONS (8)
  - ANAESTHETIC COMPLICATION [None]
  - ARTERIOSPASM CORONARY [None]
  - BLOOD PRESSURE DECREASED [None]
  - CORONARY ARTERY ATHEROSCLEROSIS [None]
  - DRUG INEFFECTIVE [None]
  - PROCEDURAL COMPLICATION [None]
  - SHOCK [None]
  - VENTRICULAR FIBRILLATION [None]
